FAERS Safety Report 9214469 (Version 1)
Quarter: 2013Q2

REPORT INFORMATION
  Report Type: Spontaneous
  Country: US (occurrence: US)
  Receive Date: 20130405
  Receipt Date: 20130405
  Transmission Date: 20140414
  Serious: Yes (Other)
  Sender: FDA-Public Use
  Company Number: US-AMGEN-USASP2013023304

PATIENT
  Age: 92 Year
  Sex: Female
  Weight: 40.36 kg

DRUGS (4)
  1. PROCRIT [Suspect]
     Indication: MYELODYSPLASTIC SYNDROME
     Dosage: UNK
     Route: 058
     Dates: start: 20000821, end: 201209
  2. SYNTHROID [Concomitant]
     Dosage: UNK
     Route: 048
  3. NORVASC [Concomitant]
     Dosage: UNK
     Route: 048
  4. LIPITOR [Concomitant]
     Dosage: UNK
     Route: 048

REACTIONS (7)
  - Jaundice [Recovered/Resolved]
  - Liver disorder [Recovered/Resolved]
  - Hepatomegaly [Recovering/Resolving]
  - Depression [Not Recovered/Not Resolved]
  - Asthenia [Not Recovered/Not Resolved]
  - Chromaturia [Recovered/Resolved]
  - Haemoglobin abnormal [Unknown]
